FAERS Safety Report 5812727-5 (Version None)
Quarter: 2008Q3

REPORT INFORMATION
  Report Type: 
  Country: None (occurrence: None)
  Receive Date: 20080714
  Receipt Date: 20080714
  Transmission Date: 20090109
  Serious: Yes (Disabling, Other)
  Sender: FDA-Public Use
  Company Number: None

PATIENT
  Age: 48 Month
  Sex: Female
  Weight: 69.8539 kg

DRUGS (2)
  1. LEVAQUIN [Suspect]
     Indication: RESPIRATORY DISORDER
     Dosage: 1 X PER DAY PO
     Route: 048
     Dates: start: 20080229, end: 20080308
  2. LEVAQUIN [Suspect]
     Indication: RESPIRATORY DISORDER
     Dosage: 1 X PER DAY PO
     Route: 048
     Dates: start: 20080702, end: 20080709

REACTIONS (1)
  - PLANTAR FASCIITIS [None]
